FAERS Safety Report 4466498-8 (Version None)
Quarter: 2004Q3

REPORT INFORMATION
  Report Type: 
  Country: None (occurrence: None)
  Receive Date: 20040930
  Receipt Date: 20040915
  Transmission Date: 20050211
  Serious: Yes (Other)
  Sender: FDA-Public Use
  Company Number: 2004-0007491

PATIENT
  Age: 56 Year
  Sex: Male

DRUGS (5)
  1. VIREAD [Suspect]
     Indication: HIV INFECTION
     Dates: end: 20040910
  2. VIRAMUNE [Suspect]
     Indication: HIV INFECTION
     Dates: end: 20040910
  3. NORVIR (RTITONAVIR) [Concomitant]
  4. LEXIVA (FOSAMPRENAVIR) [Concomitant]
  5. ANTIHYPERTENSIVES (ANTIHYPERTENSIVES) [Concomitant]

REACTIONS (3)
  - AMNESIA [None]
  - DEMENTIA [None]
  - LOSS OF CONSCIOUSNESS [None]
